FAERS Safety Report 10903873 (Version 4)
Quarter: 2015Q3

REPORT INFORMATION
  Report Type: Report from Study
  Country: US (occurrence: None)
  Receive Date: 20150306
  Receipt Date: 20150716
  Transmission Date: 20151125
  Serious: Yes (Disabling, Other)
  Sender: FDA-Public Use
  Company Number: 2015-10805

PATIENT
  Age: 74 Year
  Sex: Female

DRUGS (1)
  1. EYLEA [Suspect]
     Active Substance: AFLIBERCEPT
     Indication: NEOVASCULAR AGE-RELATED MACULAR DEGENERATION
     Dates: start: 20141201

REACTIONS (4)
  - Blindness unilateral [None]
  - Endophthalmitis [None]
  - Vitrectomy [None]
  - Streptococcal infection [None]

NARRATIVE: CASE EVENT DATE: 20150214
